FAERS Safety Report 7585728-7 (Version None)
Quarter: 2011Q2

REPORT INFORMATION
  Report Type: 
  Country: None (occurrence: None)
  Receive Date: 20110629
  Receipt Date: 20110629
  Transmission Date: 20111010
  Serious: Yes (Hospitalization)
  Sender: FDA-Public Use
  Company Number: None

PATIENT
  Age: 60 Year
  Sex: Female
  Weight: 110.6777 kg

DRUGS (3)
  1. ERLOTINIB HYDROCHLORIDE [Suspect]
     Indication: BILE DUCT CANCER
     Dosage: 100MG DAILY 6 DAYS Q2WKS
     Dates: start: 20110323, end: 20110627
  2. OXALIPLATIN [Suspect]
     Dosage: 85MG/M2
     Dates: start: 20110322, end: 20110614
  3. GEMCITABINE [Suspect]
     Indication: BILE DUCT CANCER
     Dosage: 1000MG/M2
     Dates: start: 20110321, end: 20110613

REACTIONS (1)
  - HAEMATOMA [None]
